FAERS Safety Report 5635546-1 (Version None)
Quarter: 2008Q1

REPORT INFORMATION
  Report Type: 
  Country: None (occurrence: None)
  Receive Date: 20080222
  Receipt Date: 20080213
  Transmission Date: 20080703
  Serious: Yes (Other)
  Sender: FDA-Public Use
  Company Number: JP-PFIZER INC-2008015379

PATIENT
  Age: 72 Year
  Sex: Male

DRUGS (2)
  1. LIPITOR [Suspect]
     Indication: HYPERCHOLESTEROLAEMIA
     Route: 048
     Dates: start: 20070301, end: 20080213
  2. LASIX [Concomitant]
     Dosage: TEXT:20 MG-FREQ:DAILY
     Route: 048
     Dates: start: 20070901

REACTIONS (1)
  - BLOOD POTASSIUM INCREASED [None]
